FAERS Safety Report 5768257-2 (Version None)
Quarter: 2008Q2

REPORT INFORMATION
  Report Type: 
  Country: None (occurrence: None)
  Receive Date: 20080612
  Receipt Date: 20080428
  Transmission Date: 20081010
  Serious: No
  Sender: FDA-Public Use
  Company Number: US-ABBOTT-07P-163-0425559-00

PATIENT
  Sex: Male
  Weight: 74.91 kg

DRUGS (6)
  1. HUMIRA [Suspect]
     Indication: RHEUMATOID ARTHRITIS
     Route: 058
  2. HUMIRA [Suspect]
     Route: 058
     Dates: end: 20070801
  3. HUMIRA [Suspect]
     Dates: start: 20071001
  4. ATENOLOL [Concomitant]
     Indication: CARDIAC DISORDER
     Route: 048
     Dates: start: 19850101
  5. ATENOLOL [Concomitant]
     Indication: WOLFF-PARKINSON-WHITE SYNDROME
  6. PREDNISONE TAB [Concomitant]
     Indication: RHEUMATOID ARTHRITIS
     Route: 048

REACTIONS (8)
  - CYST [None]
  - CYST DRAINAGE [None]
  - DRUG DOSE OMISSION [None]
  - IMPAIRED HEALING [None]
  - INFECTION [None]
  - INGROWING NAIL [None]
  - OPEN WOUND [None]
  - SINUSITIS [None]
